FAERS Safety Report 8819955 (Version 1)
Quarter: 2012Q4

REPORT INFORMATION
  Report Type: 
  Country: NL (occurrence: NL)
  Receive Date: 20121001
  Receipt Date: 20121001
  Transmission Date: 20130627
  Serious: Yes (Hospitalization)
  Sender: FDA-Public Use
  Company Number: NL-PFIZER INC-2012237536

PATIENT
  Age: 46 Year
  Sex: Female
  Weight: 79.5 kg

DRUGS (35)
  1. GENOTROPIN [Suspect]
     Dosage: 0.2 mg, 1x/day, 7inj/wk
     Route: 058
     Dates: start: 20040427
  2. LEVOTHYROXINE [Concomitant]
     Indication: BLOOD THYROID STIMULATING HORMONE DECREASED
     Dosage: UNK
     Dates: start: 19930801
  3. LEVOTHYROXINE [Concomitant]
     Indication: PRIMARY HYPOTHYROIDISM
  4. MINISTAT [Concomitant]
     Indication: BLOOD LUTEINISING HORMONE DECREASED
     Dosage: UNK
     Dates: start: 19931201
  5. MINISTAT [Concomitant]
     Indication: BLOOD FOLLICLE STIMULATING HORMONE DECREASED
  6. MINISTAT [Concomitant]
     Indication: HYPOGONADISM FEMALE
  7. INDERAL [Concomitant]
     Indication: MIGRAINE
     Dosage: UNK
     Dates: start: 19950701
  8. ZUMESTON [Concomitant]
     Indication: BLOOD LUTEINISING HORMONE DECREASED
     Dosage: UNK
     Dates: start: 19960222
  9. ZUMESTON [Concomitant]
     Indication: BLOOD FOLLICLE STIMULATING HORMONE DECREASED
  10. ZUMESTON [Concomitant]
     Indication: HYPOGONADISM FEMALE
  11. PAROXETIN [Concomitant]
     Indication: DEPRESSION
     Dosage: UNK
     Dates: start: 19950701
  12. SEROXAT ^CIBA-GEIGY^ [Concomitant]
     Indication: DEPRESSION
     Dosage: UNK
     Dates: start: 19960327
  13. OTRIVIN [Concomitant]
     Indication: VERTIGO
     Dosage: UNK
     Dates: start: 19960423
  14. DOXYCYCLINE [Concomitant]
     Indication: RESPIRATORY TRACT INFECTION
     Dosage: UNK
     Dates: start: 20060930
  15. DICLOFENAC [Concomitant]
     Indication: POST-TRAUMATIC NECK SYNDROME
     Dosage: UNK
     Dates: start: 19970710
  16. HYDROCHLOROTHIAZIDE WITH TRIAMTERENE [Concomitant]
     Indication: MUSCULOSKELETAL STIFFNESS
     Dosage: UNK
     Dates: start: 19970717
  17. HYDROCHLOROTHIAZIDE WITH TRIAMTERENE [Concomitant]
     Indication: ARTHRALGIA
  18. DOXY ^ABZ^ [Concomitant]
     Indication: RESPIRATORY TRACT INFECTION
     Dosage: UNK
     Dates: start: 19961215
  19. CYCLOCUR [Concomitant]
     Indication: BLOOD LUTEINISING HORMONE DECREASED
     Dosage: UNK
     Dates: start: 19970727
  20. CYCLOCUR [Concomitant]
     Indication: BLOOD FOLLICLE STIMULATING HORMONE DECREASED
  21. CYCLOCUR [Concomitant]
     Indication: HYPOGONADISM FEMALE
  22. PRIMOLUT DEPOT [Concomitant]
     Indication: BLOOD LUTEINISING HORMONE DECREASED
     Dosage: UNK
     Dates: start: 19971023
  23. PRIMOLUT DEPOT [Concomitant]
     Indication: BLOOD FOLLICLE STIMULATING HORMONE DECREASED
  24. PRIMOLUT DEPOT [Concomitant]
     Indication: HYPOGONADISM FEMALE
  25. CLOMID [Concomitant]
     Indication: INFERTILITY FEMALE
     Dosage: UNK
     Dates: start: 19970522
  26. FEMOSTON ^EURIMPHARM^ [Concomitant]
     Indication: BLOOD LUTEINISING HORMONE DECREASED
     Dosage: UNK
  27. FEMOSTON ^EURIMPHARM^ [Concomitant]
     Indication: BLOOD FOLLICLE STIMULATING HORMONE DECREASED
  28. FEMOSTON ^EURIMPHARM^ [Concomitant]
     Indication: HYPOGONADISM FEMALE
  29. ACIPEN-V [Concomitant]
     Indication: RESPIRATORY TRACT INFECTION
     Dosage: UNK
     Dates: start: 19980115
  30. ERYTHROMYCIN [Concomitant]
     Indication: ANGINA PECTORIS
     Dosage: UNK
     Dates: start: 19990212
  31. ASCAL [Concomitant]
     Indication: CARDIOVASCULAR DISORDER
     Dosage: UNK
     Dates: start: 19950701
  32. ZITROMAX [Concomitant]
     Indication: ANGINA PECTORIS
     Dosage: UNK
     Dates: start: 19990224
  33. MENOGON [Concomitant]
     Indication: INFERTILITY FEMALE
     Dosage: UNK
     Dates: start: 19990222
  34. FLIXONASE [Concomitant]
     Indication: RHINITIS ALLERGIC
     Dosage: UNK
     Dates: start: 19990908
  35. ALDOMET [Concomitant]
     Indication: ESSENTIAL HYPERTENSION
     Dosage: UNK
     Dates: start: 19970301

REACTIONS (1)
  - Varicose vein [Unknown]
